FAERS Safety Report 6631466-4 (Version None)
Quarter: 2010Q1

REPORT INFORMATION
  Report Type: 
  Country: None (occurrence: None)
  Receive Date: 20100312
  Receipt Date: 20100308
  Transmission Date: 20100710
  Serious: Yes (Death)
  Sender: FDA-Public Use
  Company Number: BR-ASTRAZENECA-2010SE09873

PATIENT
  Age: 89 Year
  Sex: Female
  Weight: 74 kg

DRUGS (4)
  1. PULMICORT [Suspect]
     Indication: CHRONIC OBSTRUCTIVE PULMONARY DISEASE
     Dosage: BID
     Route: 055
     Dates: start: 20081001
  2. SEROQUEL [Suspect]
     Indication: RESTLESSNESS
     Route: 048
     Dates: start: 20090301, end: 20091001
  3. SEROQUEL [Suspect]
     Route: 048
     Dates: start: 20091001
  4. FLUIMUCIL [Concomitant]
     Indication: CHRONIC OBSTRUCTIVE PULMONARY DISEASE
     Dosage: BID
     Route: 048

REACTIONS (5)
  - CARDIAC ARREST [None]
  - DRUG INEFFECTIVE [None]
  - HYPERTENSION [None]
  - PULMONARY HAEMORRHAGE [None]
  - RESTLESSNESS [None]
